FAERS Safety Report 9418887 (Version 1)
Quarter: 2013Q3

REPORT INFORMATION
  Report Type: Spontaneous
  Country: US (occurrence: US)
  Receive Date: 20130725
  Receipt Date: 20130725
  Transmission Date: 20140515
  Serious: No
  Sender: FDA-Public Use
  Company Number: US-BAYER-2013-089909

PATIENT
  Age: 75 Year
  Sex: Male
  Weight: 89 kg

DRUGS (6)
  1. ALEVE CAPLET [Suspect]
     Indication: ARTHRALGIA
     Dosage: 3 DF, BID
     Route: 048
     Dates: start: 2007, end: 2007
  2. METOPROLOL [Concomitant]
  3. LOSARTAN [Concomitant]
  4. AMLODIPIN [Concomitant]
  5. SYNTHROID [Concomitant]
  6. LIPITOR [Concomitant]

REACTIONS (2)
  - Drug ineffective [None]
  - Extra dose administered [None]
